FAERS Safety Report 5525092-8 (Version None)
Quarter: 2007Q4

REPORT INFORMATION
  Report Type: 
  Country: None (occurrence: None)
  Receive Date: 20071119
  Receipt Date: 20071119
  Transmission Date: 20080405
  Serious: No
  Sender: FDA-Public Use
  Company Number: None

PATIENT
  Sex: Male
  Weight: 79.3795 kg

DRUGS (1)
  1. REMICADE [Suspect]
     Indication: CROHN'S DISEASE
     Dosage: 700MG EVERY 6 WEEKS IV DRIP
     Route: 041
     Dates: start: 20050605, end: 20071116

REACTIONS (1)
  - HEPATIC NEOPLASM MALIGNANT [None]
